FAERS Safety Report 5638258-3 (Version None)
Quarter: 2008Q1

REPORT INFORMATION
  Report Type: 
  Country: None (occurrence: None)
  Receive Date: 20080212
  Receipt Date: 20080214
  Transmission Date: 20080703
  Serious: Yes (Hospitalization)
  Sender: FDA-Public Use
  Company Number: DSU-2008-00213

PATIENT
  Sex: Female

DRUGS (1)
  1. BENICAR HCT [Suspect]
     Indication: DRUG USE FOR UNKNOWN INDICATION

REACTIONS (3)
  - BLOOD PRESSURE INCREASED [None]
  - MUSCULOSKELETAL STIFFNESS [None]
  - PARAESTHESIA ORAL [None]
